FAERS Safety Report 6856553-7 (Version None)
Quarter: 2010Q3

REPORT INFORMATION
  Report Type: 
  Country: None (occurrence: None)
  Receive Date: 20100719
  Receipt Date: 20100709
  Transmission Date: 20110219
  Serious: Yes (Death, Hospitalization)
  Sender: FDA-Public Use
  Company Number: CO-ROCHE-714490

PATIENT
  Sex: Female

DRUGS (4)
  1. AVASTIN [Suspect]
     Indication: BREAST CANCER
     Route: 042
     Dates: start: 20091127, end: 20100208
  2. XELODA [Suspect]
     Indication: BREAST CANCER
     Dosage: FREQUENCY: EVERYDAY.
     Route: 048
     Dates: start: 20100302, end: 20100615
  3. ACETAMINOPHEN [Concomitant]
     Indication: PAIN
     Dosage: FREQUENCY: EVERYDAY
     Route: 048
  4. TRAMADOL [Concomitant]
     Indication: PAIN
     Dosage: FREQUENCY: PRN
     Route: 048

REACTIONS (1)
  - MALIGNANT NEOPLASM PROGRESSION [None]
